APPROVED DRUG PRODUCT: MELOXICAM
Active Ingredient: MELOXICAM
Strength: 15MG
Dosage Form/Route: TABLET;ORAL
Application: A217579 | Product #002 | TE Code: AB
Applicant: ASCENT PHARMACEUTICALS INC
Approved: Jun 7, 2023 | RLD: No | RS: No | Type: RX